FAERS Safety Report 5508283-1 (Version None)
Quarter: 2007Q4

REPORT INFORMATION
  Report Type: 
  Country: None (occurrence: None)
  Receive Date: 20071106
  Receipt Date: 20071029
  Transmission Date: 20080405
  Serious: Yes (Disabling)
  Sender: FDA-Public Use
  Company Number: GB-BOEHRINGER INGELHEIM PHARMACEUTICALS, INC.-2007-BP-23867YA

PATIENT
  Age: 88 Year
  Sex: Male
  Weight: 80 kg

DRUGS (5)
  1. FLOMAXTRA XL (TAMSULOSIN) ORODISPERSABLE CR TABLET 0.4MG [Suspect]
     Indication: URINARY TRACT DISORDER
     Route: 048
     Dates: start: 20060112, end: 20060122
  2. FLOMAX [Concomitant]
     Route: 065
     Dates: start: 20060101
  3. FINASTERIDE [Concomitant]
  4. GLICLAZIDE [Concomitant]
  5. QUININE SULFATE [Concomitant]

REACTIONS (3)
  - DIZZINESS [None]
  - GAIT DISTURBANCE [None]
  - INSOMNIA [None]
